FAERS Safety Report 19714310 (Version 1)
Quarter: 2021Q3

REPORT INFORMATION
  Report Type: Spontaneous
  Country: US (occurrence: US)
  Receive Date: 20210818
  Receipt Date: 20210818
  Transmission Date: 20211014
  Serious: No
  Sender: FDA-Public Use
  Company Number: None

PATIENT
  Age: 71 Year
  Sex: Female
  Weight: 91.9 kg

DRUGS (11)
  1. BACLOFEN. [Concomitant]
     Active Substance: BACLOFEN
  2. CRANBERRY. [Concomitant]
     Active Substance: CRANBERRY
  3. MULTIVITAMIN [Concomitant]
     Active Substance: VITAMINS
  4. ASPIRIN. [Concomitant]
     Active Substance: ASPIRIN
  5. MONTELUKAST [Concomitant]
     Active Substance: MONTELUKAST SODIUM
  6. IBRANCE [Suspect]
     Active Substance: PALBOCICLIB
     Route: 048
     Dates: start: 20210709, end: 20210818
  7. LETROZOLE. [Concomitant]
     Active Substance: LETROZOLE
  8. METOPROLOL. [Concomitant]
     Active Substance: METOPROLOL
  9. PREVACID [Concomitant]
     Active Substance: LANSOPRAZOLE
  10. DILANTIN [Concomitant]
     Active Substance: PHENYTOIN
  11. VITAMIN C [Concomitant]
     Active Substance: ASCORBIC ACID

REACTIONS (1)
  - Malaise [None]

NARRATIVE: CASE EVENT DATE: 20210818
